FAERS Safety Report 4969723-X (Version None)
Quarter: 2006Q1

REPORT INFORMATION
  Report Type: 
  Country: None (occurrence: None)
  Receive Date: 20060130
  Receipt Date: 20051018
  Transmission Date: 20060701
  Serious: No
  Sender: FDA-Public Use
  Company Number: ACETADOTE_008

PATIENT

DRUGS (2)
  1. ACETADOTE [Suspect]
     Indication: OVERDOSE
     Dosage: 150MG/K   IV
     Route: 042
     Dates: start: 20051018
  2. SOLU-MEDROL [Concomitant]

REACTIONS (1)
  - ANAPHYLACTOID REACTION [None]
